FAERS Safety Report 17929801 (Version 9)
Quarter: 2024Q1

REPORT INFORMATION
  Report Type: Spontaneous
  Country: US (occurrence: US)
  Receive Date: 20200623
  Receipt Date: 20240208
  Transmission Date: 20240409
  Serious: Yes (Other)
  Sender: FDA-Public Use
  Company Number: US-PFIZER INC-2020242099

PATIENT
  Age: 71 Year
  Sex: Female
  Weight: 43.5 kg

DRUGS (5)
  1. IBRANCE [Suspect]
     Active Substance: PALBOCICLIB
     Indication: Breast cancer metastatic
     Dosage: 3 WEEKS ON AND 1 WEEK OFF
     Dates: start: 202005
  2. IBRANCE [Suspect]
     Active Substance: PALBOCICLIB
     Dosage: 2 WEEKS ON AND 2 WEEKS OFF
     Route: 048
     Dates: start: 2023
  3. IBRANCE [Suspect]
     Active Substance: PALBOCICLIB
     Dosage: DAILY DAY 1 TABLET DAILY 14 DAYS ON -14 DAYS OFF
     Route: 048
  4. FEMARA [Concomitant]
     Active Substance: LETROZOLE
     Indication: Breast cancer metastatic
     Dosage: UNK
  5. LETROZOLE [Concomitant]
     Active Substance: LETROZOLE
     Indication: Breast cancer metastatic
     Dosage: UNK, DAILY

REACTIONS (8)
  - Pancytopenia [Unknown]
  - Thrombocytopenia [Unknown]
  - Stomatitis [Unknown]
  - Tongue disorder [Unknown]
  - Mucosal inflammation [Recovering/Resolving]
  - Fatigue [Unknown]
  - Arthralgia [Unknown]
  - Tumour marker increased [Unknown]

NARRATIVE: CASE EVENT DATE: 20200625
